FAERS Safety Report 8667595 (Version 2)
Quarter: 2013Q4

REPORT INFORMATION
  Report Type: Spontaneous
  Country: US (occurrence: US)
  Receive Date: 20120717
  Receipt Date: 20131101
  Transmission Date: 20140711
  Serious: No
  Sender: FDA-Public Use
  Company Number: US-009507513-1203USA03925

PATIENT
  Age: 68 Year
  Sex: Female
  Weight: 69.4 kg

DRUGS (2)
  1. FOSAMAX [Suspect]
     Dosage: 70 MG, QW
     Route: 048
     Dates: start: 20100827, end: 20101130
  2. PRILOSEC [Concomitant]

REACTIONS (3)
  - Dysphagia [Recovered/Resolved]
  - Abdominal discomfort [Unknown]
  - Gastric disorder [Unknown]
